FAERS Safety Report 12846750 (Version 5)
Quarter: 2019Q1

REPORT INFORMATION
  Report Type: Spontaneous
  Country: US (occurrence: US)
  Receive Date: 20161014
  Receipt Date: 20190115
  Transmission Date: 20190417
  Serious: No
  Sender: FDA-Public Use
  Company Number: US-PFIZER INC-2016474202

PATIENT
  Age: 59 Year
  Sex: Female

DRUGS (1)
  1. MORPHINE SULFATE. [Suspect]
     Active Substance: MORPHINE SULFATE
     Dosage: UNK

REACTIONS (6)
  - Drug hypersensitivity [Unknown]
  - Vomiting [Unknown]
  - Amnesia [Unknown]
  - Pruritus [Unknown]
  - Nausea [Unknown]
  - Mental status changes [Unknown]

NARRATIVE: CASE EVENT DATE: 20100510
